FAERS Safety Report 11552212 (Version 1)
Quarter: 2015Q3

REPORT INFORMATION
  Report Type: Spontaneous
  Country: US (occurrence: None)
  Receive Date: 20150924
  Receipt Date: 20150924
  Transmission Date: 20151125
  Serious: Yes (Hospitalization, Disabling)
  Sender: FDA-Public Use
  Company Number: None

PATIENT
  Age: 13 Year
  Sex: Female
  Weight: 117.94 kg

DRUGS (4)
  1. PRILOSEC [Concomitant]
     Active Substance: OMEPRAZOLE MAGNESIUM
  2. MULTIVITAMIN [Concomitant]
     Active Substance: VITAMINS
  3. APRISO [Concomitant]
     Active Substance: MESALAMINE
  4. DOXYCYCLINE 200 MG [Suspect]
     Active Substance: DOXYCYCLINE
     Indication: ACNE
     Dosage: 2 OR 2 1/2 YEARS, 2 PILLS
     Route: 048

REACTIONS (4)
  - Colitis ulcerative [None]
  - Pain [None]
  - Haematochezia [None]
  - Faecal volume increased [None]

NARRATIVE: CASE EVENT DATE: 20100212
